FAERS Safety Report 6813220-3 (Version None)
Quarter: 2010Q3

REPORT INFORMATION
  Report Type: 
  Country: None (occurrence: None)
  Receive Date: 20100701
  Receipt Date: 20100621
  Transmission Date: 20110219
  Serious: Yes (Hospitalization)
  Sender: FDA-Public Use
  Company Number: IT-PFIZER INC-2010058952

PATIENT
  Sex: Male

DRUGS (1)
  1. NORVASC [Suspect]
     Indication: HYPERTENSION
     Dosage: 5 MG, 1X/DAY
     Route: 048
     Dates: end: 20100414

REACTIONS (8)
  - CHRONIC OBSTRUCTIVE PULMONARY DISEASE [None]
  - DEPRESSION [None]
  - HEADACHE [None]
  - HYPERTENSIVE CARDIOMYOPATHY [None]
  - HYPOCHROMIC ANAEMIA [None]
  - INSOMNIA [None]
  - SOMNOLENCE [None]
  - STAPHYLOCOCCAL IMPETIGO [None]
